FAERS Safety Report 4575828-8 (Version None)
Quarter: 2005Q1

REPORT INFORMATION
  Report Type: 
  Country: None (occurrence: None)
  Receive Date: 20050204
  Receipt Date: 20050121
  Transmission Date: 20050727
  Serious: Yes (Other)
  Sender: FDA-Public Use
  Company Number: 2004115853

PATIENT
  Age: 5 Year
  Sex: Male
  Weight: 17 kg

DRUGS (8)
  1. AZITHROMYCIN [Suspect]
     Indication: MYCOPLASMA INFECTION
     Dosage: ORAL
     Route: 048
     Dates: start: 20041101
  2. FLUTICAOSNE PROPIONATE (FLUTICASONE PROPIONATE) [Concomitant]
  3. THEOPHYLLINE [Concomitant]
  4. PRANLUKAST (PRANLUKAST) [Concomitant]
  5. KETOTIFEN FUMARATE(KETOTIFEN FUMARATE) [Concomitant]
  6. TIPEPIDINE HBENZATE (TIPEPIDINE HIBENZATE) [Concomitant]
  7. ACETYLCYSTIENE(ACETYLCYSTEINE) [Concomitant]
  8. CEFCAPENE PIVOXIL HYDROCHLORIDE (CEFCAPENE PIVOXIL HYDROCHLORIDE) [Concomitant]

REACTIONS (3)
  - CYANOSIS [None]
  - GAIT DISTURBANCE [None]
  - LOSS OF CONSCIOUSNESS [None]
